FAERS Safety Report 17448509 (Version 1)
Quarter: 2020Q1

REPORT INFORMATION
  Report Type: Spontaneous
  Country: IN (occurrence: IN)
  Receive Date: 20200223
  Receipt Date: 20200223
  Transmission Date: 20200409
  Serious: Yes (Hospitalization, Other)
  Sender: FDA-Public Use
  Company Number: IN-CPL-001615

PATIENT
  Age: 20 Year
  Sex: Male

DRUGS (1)
  1. METRONIDAZOLE. [Suspect]
     Active Substance: METRONIDAZOLE
     Indication: HEPATIC AMOEBIASIS
     Dosage: FOR 13 DAYS (TOTAL CUMULATIVE DOSE 19.5 G)

REACTIONS (2)
  - Encephalopathy [Recovered/Resolved]
  - Seizure [Recovered/Resolved]
